FAERS Safety Report 5627902-2 (Version None)
Quarter: 2008Q1

REPORT INFORMATION
  Report Type: 
  Country: None (occurrence: None)
  Receive Date: 20080215
  Receipt Date: 20080211
  Transmission Date: 20080703
  Serious: Yes (Death)
  Sender: FDA-Public Use
  Company Number: US-JNJFOC-20080202470

PATIENT
  Sex: Male

DRUGS (2)
  1. DURAGESIC-100 [Suspect]
     Indication: PAIN
     Route: 062
  2. HYDROCODONE BITARTRATE [Suspect]
     Indication: PAIN

REACTIONS (2)
  - DEVICE LEAKAGE [None]
  - MULTIPLE DRUG OVERDOSE [None]
